FAERS Safety Report 6381764-7 (Version None)
Quarter: 2009Q3

REPORT INFORMATION
  Report Type: 
  Country: None (occurrence: None)
  Receive Date: 20090930
  Receipt Date: 20090918
  Transmission Date: 20100115
  Serious: Yes (Other)
  Sender: FDA-Public Use
  Company Number: US-RB-020902-09

PATIENT
  Age: 61 Year
  Sex: Female

DRUGS (1)
  1. MUCINEX DM [Suspect]
     Route: 048

REACTIONS (4)
  - ALCOHOL USE [None]
  - CONVULSION [None]
  - EPILEPSY [None]
  - MEMORY IMPAIRMENT [None]
